FAERS Safety Report 24007123 (Version 1)
Quarter: 2024Q2

REPORT INFORMATION
  Report Type: Spontaneous
  Country: IN (occurrence: IN)
  Receive Date: 20240624
  Receipt Date: 20240624
  Transmission Date: 20240716
  Serious: Yes (Death)
  Sender: FDA-Public Use
  Company Number: IN-002147023-NVSC2024IN130657

PATIENT
  Age: 50 Year
  Sex: Female

DRUGS (4)
  1. DABRAFENIB [Suspect]
     Active Substance: DABRAFENIB
     Indication: Skin depigmentation
     Dosage: 75 MG
     Route: 065
  2. DABRAFENIB [Suspect]
     Active Substance: DABRAFENIB
     Indication: Neoplasm
  3. TRAMETINIB [Suspect]
     Active Substance: TRAMETINIB
     Indication: Skin depigmentation
     Dosage: 1 MG
     Route: 065
  4. TRAMETINIB [Suspect]
     Active Substance: TRAMETINIB
     Indication: Neoplasm

REACTIONS (2)
  - Skin depigmentation [Fatal]
  - Drug ineffective [Unknown]
